FAERS Safety Report 22163339 (Version 3)
Quarter: 2023Q2

REPORT INFORMATION
  Report Type: Report from Study
  Country: DO (occurrence: DO)
  Receive Date: 20230401
  Receipt Date: 20230623
  Transmission Date: 20230721
  Serious: Yes (Life-Threatening, Other)
  Sender: FDA-Public Use
  Company Number: DO-002147023-NVSC2022DO196353

PATIENT
  Age: 34 Year
  Sex: Male

DRUGS (4)
  1. KESIMPTA [Suspect]
     Active Substance: OFATUMUMAB
     Indication: Relapsing-remitting multiple sclerosis
     Dosage: 20 MG, OTHER (1ST INDUCT-ION DOSE)
     Route: 058
     Dates: start: 20220825
  2. KESIMPTA [Suspect]
     Active Substance: OFATUMUMAB
     Indication: Multiple sclerosis
     Dosage: 20 MG (3RD INDUCTION DOSE)
     Route: 058
  3. KESIMPTA [Suspect]
     Active Substance: OFATUMUMAB
     Dosage: 20 MG, QMO
     Route: 058
  4. KESIMPTA [Suspect]
     Active Substance: OFATUMUMAB
     Dosage: DOSE: 20 MG/0.4 ML, QMO
     Route: 058
     Dates: end: 20230620

REACTIONS (11)
  - Respiratory arrest [Unknown]
  - Blindness [Unknown]
  - Asphyxia [Unknown]
  - Amnesia [Unknown]
  - Depressed mood [Unknown]
  - Aphasia [Unknown]
  - Mood altered [Unknown]
  - Asthenia [Unknown]
  - Fall [Unknown]
  - Illness [Unknown]
  - Drug ineffective [Unknown]

NARRATIVE: CASE EVENT DATE: 20220915
